FAERS Safety Report 10366270 (Version 2)
Quarter: 2014Q3

REPORT INFORMATION
  Report Type: Report from Study
  Country: CA (occurrence: CA)
  Receive Date: 20140806
  Receipt Date: 20140806
  Transmission Date: 20150326
  Serious: Yes (Life-Threatening, Hospitalization, Other)
  Sender: FDA-Public Use
  Company Number: CA-GILEAD-2014-0101944

PATIENT
  Age: 59 Year
  Sex: Male
  Weight: 67 kg

DRUGS (19)
  1. IDELALISIB [Suspect]
     Active Substance: IDELALISIB
     Dosage: 150 MG, BID
     Route: 048
     Dates: start: 20140430, end: 20140504
  2. ARANESP [Concomitant]
     Active Substance: DARBEPOETIN ALFA
  3. IDELALISIB [Suspect]
     Active Substance: IDELALISIB
     Indication: B-CELL SMALL LYMPHOCYTIC LYMPHOMA
     Dosage: 150 MG, BID
     Route: 048
     Dates: start: 20140514, end: 20140602
  4. MAGNESIUM GLUCEPTATE [Concomitant]
  5. SIMVASTATIN. [Concomitant]
     Active Substance: SIMVASTATIN
  6. BENDAMUSTINE [Suspect]
     Active Substance: BENDAMUSTINE
     Indication: B-CELL SMALL LYMPHOCYTIC LYMPHOMA
     Dosage: 155 MG, CYCLICAL
     Route: 042
     Dates: start: 20140430, end: 20140501
  7. ALENDRONATE [Concomitant]
     Active Substance: ALENDRONATE SODIUM
  8. RITUXIMAB [Suspect]
     Active Substance: RITUXIMAB
     Indication: B-CELL SMALL LYMPHOCYTIC LYMPHOMA
     Dosage: 650 MG, CYCLICAL
     Route: 042
     Dates: start: 20140430, end: 20140430
  9. PREVACID [Concomitant]
     Active Substance: LANSOPRAZOLE
  10. SEPTRA [Concomitant]
     Active Substance: SULFAMETHOXAZOLE\TRIMETHOPRIM
     Indication: INFECTION PROPHYLAXIS
  11. ZOFRAN                             /00955301/ [Concomitant]
     Active Substance: ONDANSETRON HYDROCHLORIDE
  12. PHOSPHATE NOVARTIS [Concomitant]
  13. CALCIUM CARBONATE. [Concomitant]
     Active Substance: CALCIUM CARBONATE
  14. VENTOLIN [Concomitant]
     Active Substance: ALBUTEROL SULFATE
  15. VALACYCLOVIR [Concomitant]
     Active Substance: VALACYCLOVIR HYDROCHLORIDE
     Indication: INFECTION PROPHYLAXIS
  16. NOVOMIX [Concomitant]
     Active Substance: INSULIN ASPART
  17. LASIX [Concomitant]
     Active Substance: FUROSEMIDE
  18. SLOW-K [Concomitant]
     Active Substance: POTASSIUM CHLORIDE
  19. INSULIN GLARGINE [Concomitant]
     Active Substance: INSULIN GLARGINE

REACTIONS (3)
  - Anaemia [Recovered/Resolved]
  - Febrile neutropenia [Recovered/Resolved]
  - Sepsis [Recovered/Resolved]

NARRATIVE: CASE EVENT DATE: 20140504
